FAERS Safety Report 7384509-7 (Version None)
Quarter: 2011Q1

REPORT INFORMATION
  Report Type: 
  Country: None (occurrence: None)
  Receive Date: 20110317
  Receipt Date: 20110310
  Transmission Date: 20110831
  Serious: Yes (Death, Hospitalization)
  Sender: FDA-Public Use
  Company Number: 2011027847

PATIENT
  Age: 77 Year
  Sex: Female
  Weight: 45.3597 kg

DRUGS (25)
  1. ZOCOR [Concomitant]
  2. WELCHOL [Concomitant]
  3. AMBIEN [Concomitant]
  4. DIGOXIN [Concomitant]
  5. ALBUTEROL [Concomitant]
  6. BYSTOLIC [Concomitant]
  7. NORVASC [Concomitant]
  8. DIPHENHYDRAMINE HCL [Concomitant]
  9. BONIVA [Concomitant]
  10. XOPENEX HFA (LEVOSALBUTAMOL) [Concomitant]
  11. PRIVIGEN [Suspect]
     Indication: POLYNEUROPATHY
     Dosage: (15 G 1X/3 WEEKS, 15 G (10% CONCENTRATION) (150 ML) INTRAVENOUS)), (10 G), (5 G)
     Dates: start: 20101101
  12. PRIVIGEN [Suspect]
     Indication: IMMUNODEFICIENCY COMMON VARIABLE
     Dosage: (15 G 1X/3 WEEKS, 15 G (10% CONCENTRATION) (150 ML) INTRAVENOUS)), (10 G), (5 G)
     Dates: start: 20101101
  13. LOVAZA (FISH OIL) [Concomitant]
  14. CLONIDINE [Concomitant]
  15. VICODIN [Concomitant]
  16. CALCIUM (CALCIUM) [Concomitant]
  17. PRANDIN (DEFLAZACORT) [Concomitant]
  18. SPIRIVA [Concomitant]
  19. ACETAMINOPHEN [Concomitant]
  20. PRIVIGEN [Suspect]
  21. PREDNISONE [Concomitant]
  22. ASPIRIN [Concomitant]
  23. PREDNISONE [Concomitant]
  24. COZAAR [Concomitant]
  25. VITAMIN D [Concomitant]

REACTIONS (1)
  - CEREBROVASCULAR ACCIDENT [None]
